FAERS Safety Report 10233004 (Version 1)
Quarter: 2014Q2

REPORT INFORMATION
  Report Type: Spontaneous
  Country: US (occurrence: None)
  Receive Date: 20140611
  Receipt Date: 20140611
  Transmission Date: 20141212
  Serious: No
  Sender: FDA-Public Use
  Company Number: None

PATIENT
  Age: 70 Year
  Sex: Male
  Weight: 79.83 kg

DRUGS (4)
  1. LEVAQUIN [Suspect]
     Indication: LOWER RESPIRATORY TRACT INFECTION
     Dosage: 1 TABLET QD ORAL
     Route: 048
     Dates: start: 20140429, end: 20140506
  2. LEVAQUIN [Suspect]
     Indication: CHRONIC OBSTRUCTIVE PULMONARY DISEASE
     Dosage: 1 TABLET QD ORAL
     Route: 048
     Dates: start: 20140429, end: 20140506
  3. PREDNISONE [Concomitant]
  4. ASPIRIN [Concomitant]

REACTIONS (1)
  - Tendon pain [None]
